FAERS Safety Report 9305069 (Version 2)
Quarter: 2014Q1

REPORT INFORMATION
  Report Type: Spontaneous
  Country: ES (occurrence: ES)
  Receive Date: 20130523
  Receipt Date: 20140205
  Transmission Date: 20141002
  Serious: Yes (Other)
  Sender: FDA-Public Use
  Company Number: ES-ROCHE-1227592

PATIENT
  Age: 62 Year
  Sex: Male

DRUGS (12)
  1. MABTHERA [Suspect]
     Indication: MANTLE CELL LYMPHOMA STAGE IV
     Route: 065
     Dates: start: 2003
  2. MABTHERA [Suspect]
     Indication: EXTRANODAL MARGINAL ZONE B-CELL LYMPHOMA (MALT TYPE)
  3. CYCLOPHOSPHAMIDE [Suspect]
     Indication: MANTLE CELL LYMPHOMA STAGE IV
     Route: 065
     Dates: start: 2003
  4. CYCLOPHOSPHAMIDE [Suspect]
     Indication: EXTRANODAL MARGINAL ZONE B-CELL LYMPHOMA (MALT TYPE)
  5. VINCRISTINE [Suspect]
     Indication: MANTLE CELL LYMPHOMA STAGE IV
     Route: 065
     Dates: start: 2003
  6. VINCRISTINE [Suspect]
     Indication: EXTRANODAL MARGINAL ZONE B-CELL LYMPHOMA (MALT TYPE)
  7. DOXORUBICIN [Suspect]
     Indication: MANTLE CELL LYMPHOMA STAGE IV
     Route: 065
     Dates: start: 2003
  8. DOXORUBICIN [Suspect]
     Indication: EXTRANODAL MARGINAL ZONE B-CELL LYMPHOMA (MALT TYPE)
  9. DEXAMETHASONE [Suspect]
     Indication: MANTLE CELL LYMPHOMA STAGE IV
     Route: 065
     Dates: start: 2003
  10. DEXAMETHASONE [Suspect]
     Indication: EXTRANODAL MARGINAL ZONE B-CELL LYMPHOMA (MALT TYPE)
  11. PREDNISOLONE [Suspect]
     Indication: MANTLE CELL LYMPHOMA STAGE IV
     Route: 065
     Dates: start: 2003
  12. PREDNISOLONE [Suspect]
     Indication: EXTRANODAL MARGINAL ZONE B-CELL LYMPHOMA (MALT TYPE)

REACTIONS (1)
  - Autoimmune neutropenia [Unknown]
